FAERS Safety Report 18582782 (Version 10)
Quarter: 2022Q1

REPORT INFORMATION
  Report Type: Report from Study
  Country: US (occurrence: US)
  Receive Date: 20201205
  Receipt Date: 20220324
  Transmission Date: 20220424
  Serious: Yes (Hospitalization, Other)
  Sender: FDA-Public Use
  Company Number: NVSC2020US319542

PATIENT
  Sex: Female

DRUGS (2)
  1. COSENTYX [Suspect]
     Active Substance: SECUKINUMAB
     Indication: Psoriasis
     Dosage: UNK (1 INJECTION)
     Route: 065
  2. COSENTYX [Suspect]
     Active Substance: SECUKINUMAB
     Dosage: 300 MG, QMO
     Route: 058

REACTIONS (12)
  - Illness [Unknown]
  - Psoriatic arthropathy [Unknown]
  - Gait inability [Unknown]
  - Arthritis [Unknown]
  - Pruritus [Unknown]
  - Condition aggravated [Unknown]
  - COVID-19 [Recovered/Resolved]
  - Oxygen saturation abnormal [Unknown]
  - Dyspnoea [Unknown]
  - Traumatic lung injury [Unknown]
  - Psoriasis [Unknown]
  - Product dose omission issue [Unknown]
